FAERS Safety Report 13877944 (Version 1)
Quarter: 2017Q3

REPORT INFORMATION
  Report Type: Spontaneous
  Country: US (occurrence: US)
  Receive Date: 20170817
  Receipt Date: 20170817
  Transmission Date: 20171127
  Serious: Yes (Other)
  Sender: FDA-Public Use
  Company Number: US-SUNOVION-2017SUN003651

PATIENT
  Age: 0 Day
  Sex: Female
  Weight: 3.63 kg

DRUGS (3)
  1. LATUDA [Suspect]
     Active Substance: LURASIDONE HYDROCHLORIDE
     Dosage: 20 MG, UNK
     Route: 064
     Dates: start: 2016, end: 201703
  2. IRON [Concomitant]
     Active Substance: IRON
     Dosage: 28 MG, BID
  3. LATUDA [Suspect]
     Active Substance: LURASIDONE HYDROCHLORIDE
     Dosage: 40 MG, UNK
     Route: 064
     Dates: start: 201703

REACTIONS (3)
  - Umbilical cord around neck [Unknown]
  - Exposure during breast feeding [Recovered/Resolved]
  - Irritability [Recovered/Resolved]

NARRATIVE: CASE EVENT DATE: 20170625
